FAERS Safety Report 16712172 (Version 2)
Quarter: 2019Q3

REPORT INFORMATION
  Report Type: Spontaneous
  Country: DK (occurrence: DK)
  Receive Date: 20190816
  Receipt Date: 20190827
  Transmission Date: 20191004
  Serious: Yes (Hospitalization)
  Sender: FDA-Public Use
  Company Number: DK-MYLANLABS-2019M1076317

PATIENT
  Age: 63 Year
  Sex: Female

DRUGS (5)
  1. FOLINIC ACID [Concomitant]
     Active Substance: LEUCOVORIN
     Indication: VITAMIN SUPPLEMENTATION
     Dosage: STYRKE: 5 MG. DOSIS:  5 MG TORSDAG OG 5 MG L?RDAG.
     Route: 048
     Dates: start: 20130715, end: 20181022
  2. METHOTREXATE. [Suspect]
     Active Substance: METHOTREXATE
     Indication: RHEUMATOID ARTHRITIS
     Dosage: DOSIS: UKENDT, STYRKE: UKENDT.
     Route: 058
     Dates: start: 20130715
  3. ALENDRONATE [Suspect]
     Active Substance: ALENDRONATE SODIUM
     Indication: OSTEOPOROSIS
     Dosage: STYRKE: 70 MG.
     Route: 048
     Dates: start: 201405, end: 20180604
  4. UNIKALK MEGA [Concomitant]
     Indication: VITAMIN SUPPLEMENTATION
     Dosage: STYRKE: UKENDT.
     Route: 048
     Dates: start: 20130715
  5. UNIKALK FORTE [Concomitant]
     Indication: VITAMIN SUPPLEMENTATION
     Dosage: 2 DOSAGE FORM, QD
     Route: 048
     Dates: start: 20130715

REACTIONS (5)
  - Wheelchair user [Unknown]
  - Stress fracture [Unknown]
  - Pain [Unknown]
  - Impaired healing [Unknown]
  - Fracture delayed union [Unknown]

NARRATIVE: CASE EVENT DATE: 201510
